FAERS Safety Report 16962681 (Version 3)
Quarter: 2019Q4

REPORT INFORMATION
  Report Type: Report from Study
  Country: US (occurrence: US)
  Receive Date: 20191025
  Receipt Date: 20191107
  Transmission Date: 20200122
  Serious: Yes (Hospitalization, Other)
  Sender: FDA-Public Use
  Company Number: US-ACTELION-A-NJ2019-196504

PATIENT
  Sex: Female
  Weight: 47.62 kg

DRUGS (8)
  1. UPTRAVI [Suspect]
     Active Substance: SELEXIPAG
     Indication: PULMONARY ARTERIAL HYPERTENSION
     Dosage: 800 MCG, BID
     Route: 048
  2. UPTRAVI [Suspect]
     Active Substance: SELEXIPAG
     Dosage: 600 MCG AM, 800 MCG PM
     Route: 048
  3. UPTRAVI [Suspect]
     Active Substance: SELEXIPAG
     Dosage: 600 MCG IN AM, 400 MCG IN PM
     Route: 048
  4. UPTRAVI [Suspect]
     Active Substance: SELEXIPAG
     Dosage: 200 MCG, BID
     Route: 048
     Dates: start: 20190924
  5. OPSUMIT [Concomitant]
     Active Substance: MACITENTAN
     Route: 048
  6. WARFARIN [Concomitant]
     Active Substance: WARFARIN
  7. SILDENAFIL. [Concomitant]
     Active Substance: SILDENAFIL
  8. UPTRAVI [Suspect]
     Active Substance: SELEXIPAG
     Dosage: 600 MCG, BID
     Route: 048
     Dates: start: 20190924

REACTIONS (13)
  - Pain in extremity [Unknown]
  - Limb discomfort [Unknown]
  - Fluid retention [Unknown]
  - Hospitalisation [Unknown]
  - Sleep disorder [Unknown]
  - Dyspnoea [Unknown]
  - Cough [Unknown]
  - Dysuria [Unknown]
  - Joint swelling [Unknown]
  - Abdominal distension [Unknown]
  - Cardiac ablation [Unknown]
  - Headache [Unknown]
  - Hepatic enzyme increased [Unknown]
